FAERS Safety Report 7350789-7 (Version None)
Quarter: 2011Q1

REPORT INFORMATION
  Report Type: 
  Country: None (occurrence: None)
  Receive Date: 20110314
  Receipt Date: 20110307
  Transmission Date: 20110831
  Serious: Yes (Death)
  Sender: FDA-Public Use
  Company Number: JP-JNJFOC-20110304562

PATIENT
  Age: 73 Year
  Sex: Female

DRUGS (13)
  1. INVEGA [Suspect]
     Indication: HALLUCINATION
     Route: 048
  2. METHYCOBAL [Concomitant]
     Route: 048
  3. MYSLEE [Concomitant]
     Route: 048
  4. SELENICA-R [Concomitant]
     Route: 048
  5. UBRETID [Concomitant]
     Route: 048
  6. SENNOSIDE [Concomitant]
     Route: 048
  7. ESTAZOLAM [Concomitant]
     Route: 048
  8. IMIDAFENACIN [Concomitant]
     Route: 048
  9. MUCOSTA [Concomitant]
     Route: 048
  10. LONASEN [Concomitant]
     Route: 048
  11. CONTOMIN [Concomitant]
     Route: 048
  12. AKINETON [Concomitant]
     Route: 048
  13. LONASEN [Concomitant]
     Route: 048

REACTIONS (1)
  - SUDDEN DEATH [None]
